FAERS Safety Report 8607015 (Version 3)
Quarter: 2013Q4

REPORT INFORMATION
  Report Type: Spontaneous
  Country: US (occurrence: US)
  Receive Date: 20120611
  Receipt Date: 20131129
  Transmission Date: 20140711
  Serious: Yes (Hospitalization, Other)
  Sender: FDA-Public Use
  Company Number: US-ASTRAZENECA-2012SE35854

PATIENT
  Age: 56 Year
  Sex: Female
  Weight: 95.7 kg

DRUGS (11)
  1. NEXIUM [Suspect]
     Indication: GASTRIC DISORDER
     Route: 048
     Dates: start: 1994, end: 2007
  2. NEXIUM [Suspect]
     Indication: DYSPEPSIA
     Route: 048
     Dates: start: 1994, end: 2007
  3. NEXIUM [Suspect]
     Indication: GASTRIC DISORDER
     Route: 048
     Dates: start: 20060330
  4. NEXIUM [Suspect]
     Indication: DYSPEPSIA
     Route: 048
     Dates: start: 20060330
  5. TUMS [Concomitant]
     Dosage: 3 TIMES A DAY
     Dates: start: 2007, end: 2011
  6. FOSAMAX [Concomitant]
     Dates: start: 20071112
  7. FISH OIL [Concomitant]
     Dates: start: 20060330
  8. BENICAR [Concomitant]
     Dates: start: 20060330
  9. LESCOL [Concomitant]
     Dates: start: 20060330
  10. PREMARIN [Concomitant]
     Dates: start: 20060330
  11. ZANTAC [Concomitant]
     Dates: start: 20040520

REACTIONS (32)
  - Hip fracture [Unknown]
  - Hand fracture [Unknown]
  - Lower limb fracture [Unknown]
  - Ankle fracture [Unknown]
  - Cerebrovascular accident [Unknown]
  - Tooth loss [Unknown]
  - Fall [Unknown]
  - Osteoporosis [Unknown]
  - Bone pain [Unknown]
  - Arthritis [Unknown]
  - Bone disorder [Unknown]
  - Muscle disorder [Unknown]
  - Cartilage injury [Unknown]
  - Sciatica [Unknown]
  - Back disorder [Unknown]
  - Joint effusion [Unknown]
  - Osteoarthritis [Unknown]
  - Intervertebral disc protrusion [Unknown]
  - Pelvic organ injury [Unknown]
  - Muscle strain [Unknown]
  - Ligament sprain [Unknown]
  - Knee deformity [Unknown]
  - Bursitis [Unknown]
  - Carpal tunnel syndrome [Unknown]
  - Arthropathy [Unknown]
  - Lumbar spinal stenosis [Unknown]
  - Plantar fasciitis [Unknown]
  - Paronychia [Unknown]
  - Contusion [Unknown]
  - Osteopenia [Unknown]
  - Muscle spasms [Unknown]
  - Joint injury [Unknown]
